FAERS Safety Report 7950761-X (Version None)
Quarter: 2011Q4

REPORT INFORMATION
  Report Type: 
  Country: None (occurrence: None)
  Receive Date: 20111123
  Receipt Date: 20111116
  Transmission Date: 20120403
  Serious: Yes (Death)
  Sender: FDA-Public Use
  Company Number: UTC-012531

PATIENT
  Age: 56 Year
  Sex: Female
  Weight: 132.7 kg

DRUGS (1)
  1. REMODULIN [Suspect]
     Indication: COR PULMONALE CHRONIC
     Dosage: (0.013 UG/KG), INTRAVENOUS
     Route: 042
     Dates: start: 20110902

REACTIONS (1)
  - DEATH [None]
